FAERS Safety Report 6342104-2 (Version None)
Quarter: 2009Q3

REPORT INFORMATION
  Report Type: 
  Country: None (occurrence: None)
  Receive Date: 20090903
  Receipt Date: 20090903
  Transmission Date: 20100115
  Serious: Yes (Hospitalization)
  Sender: FDA-Public Use
  Company Number: None

PATIENT
  Age: 69 Year
  Sex: Male
  Weight: 78.4723 kg

DRUGS (20)
  1. ABRAXANE [Suspect]
     Indication: NON-SMALL CELL LUNG CANCER
     Dosage: 100MG/M2 D1, 8 + 15
     Dates: start: 20090814, end: 20090814
  2. CARBOPLATIN [Suspect]
     Indication: NON-SMALL CELL LUNG CANCER
     Dosage: AUC 6 D1 Q 21 DAYS
     Dates: start: 20090814, end: 20090814
  3. AVASTIN [Suspect]
     Indication: NON-SMALL CELL LUNG CANCER
     Dosage: 15 MG/M2 D1 Q 21 DAY
     Dates: start: 20090731, end: 20090814
  4. ATIVAN [Concomitant]
  5. CARDIZEM [Concomitant]
  6. COLACE [Concomitant]
  7. COMPAZINE [Concomitant]
  8. DECADRON [Concomitant]
  9. ELOCON [Concomitant]
  10. FENTANYL TRANSDERMAL SYSTEM [Concomitant]
  11. KEFLEX [Concomitant]
  12. MENTAX [Concomitant]
  13. MIRALAX [Concomitant]
  14. NYSTATIN [Concomitant]
  15. NYSTATIN SWISH AND SWALLOW [Concomitant]
  16. OXYCODONE [Concomitant]
  17. OXYCONTIN [Concomitant]
  18. SENNA TABLETS SYNTHROID [Concomitant]
  19. ZANTAC [Concomitant]
  20. ZOFRAN [Concomitant]

REACTIONS (2)
  - COMPRESSION FRACTURE [None]
  - NAUSEA [None]
